FAERS Safety Report 18597411 (Version 1)
Quarter: 2020Q4

REPORT INFORMATION
  Report Type: Spontaneous
  Country: US (occurrence: US)
  Receive Date: 20201209
  Receipt Date: 20201209
  Transmission Date: 20210114
  Serious: No
  Sender: FDA-Public Use
  Company Number: US-IBSA PHARMA INC.-2020IBS000149

PATIENT

DRUGS (4)
  1. FORTEO [Suspect]
     Active Substance: TERIPARATIDE
     Indication: PRODUCT USED FOR UNKNOWN INDICATION
     Dosage: UNK, QD
     Dates: start: 20200115, end: 202007
  2. TIROSINT [Suspect]
     Active Substance: LEVOTHYROXINE SODIUM
     Dosage: 50 ?G, QD
     Route: 048
     Dates: start: 20200601, end: 202007
  3. TIROSINT [Suspect]
     Active Substance: LEVOTHYROXINE SODIUM
     Indication: HYPOTHYROIDISM
     Dosage: 75 ?G, QD
     Route: 048
     Dates: start: 202007
  4. VALIUM [Concomitant]
     Active Substance: DIAZEPAM
     Indication: PRODUCT USED FOR UNKNOWN INDICATION
     Dosage: UNK, AS NEEDED
     Route: 048

REACTIONS (8)
  - Joint swelling [Recovering/Resolving]
  - Adverse reaction [Unknown]
  - Asthenia [Recovering/Resolving]
  - Erythema [Recovering/Resolving]
  - Dizziness [Recovering/Resolving]
  - Pain [Recovering/Resolving]
  - Respiration abnormal [Not Recovered/Not Resolved]
  - Blood pressure increased [Not Recovered/Not Resolved]

NARRATIVE: CASE EVENT DATE: 2020
